FAERS Safety Report 18680314 (Version 1)
Quarter: 2020Q4

REPORT INFORMATION
  Report Type: Spontaneous
  Country: US (occurrence: US)
  Receive Date: 20201229
  Receipt Date: 20201229
  Transmission Date: 20210114
  Serious: No
  Sender: FDA-Public Use
  Company Number: US-009507513-2012USA010709

PATIENT
  Age: 60 Year
  Sex: Male

DRUGS (2)
  1. AMPICILLIN [Concomitant]
     Active Substance: AMPICILLIN
  2. CUBICIN [Suspect]
     Active Substance: DAPTOMYCIN
     Indication: LACTOBACILLUS INFECTION

REACTIONS (1)
  - Product use in unapproved indication [Unknown]
